FAERS Safety Report 6395389-0 (Version None)
Quarter: 2009Q4

REPORT INFORMATION
  Report Type: 
  Country: None (occurrence: None)
  Receive Date: 20091009
  Receipt Date: 20091001
  Transmission Date: 20100525
  Serious: Yes (Other)
  Sender: FDA-Public Use
  Company Number: MX-ELI_LILLY_AND_COMPANY-MX200909004255

PATIENT
  Age: 11 Year
  Sex: Female
  Weight: 42 kg

DRUGS (2)
  1. HUMALOG MIX 75/25 [Suspect]
     Indication: TYPE 1 DIABETES MELLITUS
     Dosage: 5 IU, 3/D
     Route: 058
     Dates: start: 20090401, end: 20090401
  2. LANTUS [Concomitant]
     Dosage: 20 IU, EACH EVENING
     Route: 065
     Dates: start: 20080501

REACTIONS (1)
  - HYPERGLYCAEMIA [None]
